FAERS Safety Report 23615349 (Version 1)
Quarter: 2024Q1

REPORT INFORMATION
  Report Type: Spontaneous
  Country: JP (occurrence: JP)
  Receive Date: 20240311
  Receipt Date: 20240311
  Transmission Date: 20240410
  Serious: Yes (Other)
  Sender: FDA-Public Use
  Company Number: JP-ALKEM LABORATORIES LIMITED-JP-ALKEM-2024-00898

PATIENT
  Age: 78 Year
  Sex: Male
  Weight: 61.7 kg

DRUGS (3)
  1. VANCOMYCIN [Suspect]
     Active Substance: VANCOMYCIN
     Indication: Peritonitis
     Dosage: UNK
     Route: 033
  2. CEFTAZIDIME [Suspect]
     Active Substance: CEFTAZIDIME
     Indication: Peritonitis
     Dosage: UNK
     Route: 033
  3. PENICILLIN G [Suspect]
     Active Substance: PENICILLIN G
     Indication: Peritonitis
     Dosage: UNK
     Route: 065

REACTIONS (2)
  - Peritonitis [Unknown]
  - Disease recurrence [Unknown]
